FAERS Safety Report 18925993 (Version 1)
Quarter: 2021Q1

REPORT INFORMATION
  Report Type: Spontaneous
  Country: US (occurrence: US)
  Receive Date: 20210222
  Receipt Date: 20210222
  Transmission Date: 20210420
  Serious: Yes (Hospitalization)
  Sender: FDA-Public Use
  Company Number: US-VALIDUS PHARMACEUTICALS LLC-US-2021VAL000088

PATIENT

DRUGS (4)
  1. REMODULIN [Suspect]
     Active Substance: TREPROSTINIL
     Indication: PULMONARY ARTERIAL HYPERTENSION
     Dosage: UNK
     Route: 058
     Dates: start: 20210105
  2. BUMEX [Suspect]
     Active Substance: BUMETANIDE
     Dosage: UNK (DOSE INCREASED)
     Route: 065
     Dates: start: 202102
  3. BUMEX [Suspect]
     Active Substance: BUMETANIDE
     Indication: FLUID RETENTION
     Dosage: UNK
     Route: 065
  4. REMODULIN [Suspect]
     Active Substance: TREPROSTINIL
     Dosage: 0.0274 ?G/KG, UNK
     Route: 058

REACTIONS (6)
  - Nausea [Unknown]
  - Blood pressure decreased [Unknown]
  - Malaise [Unknown]
  - Fluid retention [Unknown]
  - Fatigue [Unknown]
  - Weight increased [Unknown]

NARRATIVE: CASE EVENT DATE: 20210204
